FAERS Safety Report 5040625-6 (Version None)
Quarter: 2006Q2

REPORT INFORMATION
  Report Type: 
  Country: None (occurrence: None)
  Receive Date: 20060628
  Receipt Date: 20060615
  Transmission Date: 20061013
  Serious: Yes (Hospitalization)
  Sender: FDA-Public Use
  Company Number: S06-GER-02593-01

PATIENT
  Age: 78 Year
  Sex: Female

DRUGS (16)
  1. CITALOPRAM [Suspect]
     Indication: DEPRESSION
     Dosage: 60 MG QD PO
     Route: 048
  2. CITALOPRAM [Suspect]
     Indication: DEPRESSION
  3. CITALOPRAM [Suspect]
     Indication: DEPRESSION
  4. FUROSEMIDE [Suspect]
     Dosage: 125 MG QD PO
     Route: 048
  5. ZOPICLON (ZIPICLONE) [Concomitant]
  6. BAYMYCARD (NISOLDIPINE) [Concomitant]
  7. ATACAND [Concomitant]
  8. ISOSORBIDE DINITRATE [Concomitant]
  9. ASPIRIN [Concomitant]
  10. NESIUM (ESOMEPRAZOLE) [Concomitant]
  11. MAGNESIOCARD (MAGNESIUM ASPARTATE HYDROCHLORIDE) [Concomitant]
  12. FERRANIN COMPLEX [Concomitant]
  13. PYRIDOXIN         (PYRIDOXINE HYDROCHLORIDE) (PYRIDOXIN) [Concomitant]
  14. FOLIC ACID [Concomitant]
  15. CYANOCOBALMIN                (CYANOCOBALAMIN) [Concomitant]
  16. EFFORTIL                   (ETILEFRINE HYDROCHLORIDE) [Concomitant]

REACTIONS (7)
  - ABDOMINAL PAIN [None]
  - ASTHENIA [None]
  - DISEASE RECURRENCE [None]
  - DIZZINESS [None]
  - FALL [None]
  - HYPONATRAEMIA [None]
  - NORMOCHROMIC NORMOCYTIC ANAEMIA [None]
